FAERS Safety Report 7897743-4 (Version None)
Quarter: 2011Q4

REPORT INFORMATION
  Report Type: 
  Country: None (occurrence: None)
  Receive Date: 20111107
  Receipt Date: 20111102
  Transmission Date: 20120403
  Serious: Yes (Other)
  Sender: FDA-Public Use
  Company Number: US-ROCHE-784615

PATIENT
  Sex: Female
  Weight: 89.892 kg

DRUGS (1)
  1. ACCUTANE [Suspect]
     Indication: ACNE
     Route: 065
     Dates: start: 19981119, end: 19990406

REACTIONS (7)
  - INFLAMMATORY BOWEL DISEASE [None]
  - SUICIDAL IDEATION [None]
  - CROHN'S DISEASE [None]
  - BLOOD CHOLESTEROL INCREASED [None]
  - DEPRESSION [None]
  - COLITIS ULCERATIVE [None]
  - IRRITABLE BOWEL SYNDROME [None]
